FAERS Safety Report 23488050 (Version 3)
Quarter: 2024Q1

REPORT INFORMATION
  Report Type: Spontaneous
  Country: US (occurrence: US)
  Receive Date: 20240206
  Receipt Date: 20240325
  Transmission Date: 20240409
  Serious: Yes (Hospitalization, Other)
  Sender: FDA-Public Use
  Company Number: US-BRISTOL-MYERS SQUIBB COMPANY-2024-017160

PATIENT
  Age: 70 Year
  Sex: Male
  Weight: 80.29 kg

DRUGS (1)
  1. REVLIMID [Suspect]
     Active Substance: LENALIDOMIDE
     Indication: Plasma cell myeloma
     Route: 048

REACTIONS (6)
  - Dyspnoea [Recovering/Resolving]
  - Blood urine present [Recovering/Resolving]
  - Rales [Recovering/Resolving]
  - Ejection fraction decreased [Unknown]
  - Renal disorder [Recovering/Resolving]
  - Cytopenia [Unknown]
